FAERS Safety Report 20988505 (Version 1)
Quarter: 2022Q2

REPORT INFORMATION
  Report Type: Spontaneous
  Country: CN (occurrence: CN)
  Receive Date: 20220621
  Receipt Date: 20220621
  Transmission Date: 20220721
  Serious: Yes (Other)
  Sender: FDA-Public Use
  Company Number: CN-PFIZER INC-PV202200005017

PATIENT
  Age: 3 Year
  Sex: Male

DRUGS (2)
  1. CEFOPERAZONE SODIUM [Suspect]
     Active Substance: CEFOPERAZONE SODIUM
     Indication: Complicated appendicitis
     Dosage: 1 G, 3X/DAY
     Route: 041
     Dates: start: 20220612, end: 20220613
  2. METRONIDAZOLE\SODIUM CHLORIDE [Concomitant]
     Active Substance: METRONIDAZOLE\SODIUM CHLORIDE
     Indication: Complicated appendicitis
     Dosage: 0.12 G, 3X/DAY
     Route: 041
     Dates: start: 20220612, end: 20220613

REACTIONS (1)
  - Urticaria [Recovered/Resolved]

NARRATIVE: CASE EVENT DATE: 20220613
